FAERS Safety Report 8472752-5 (Version None)
Quarter: 2012Q2

REPORT INFORMATION
  Report Type: 
  Country: None (occurrence: None)
  Receive Date: 20120627
  Receipt Date: 20120531
  Transmission Date: 20120825
  Serious: No
  Sender: FDA-Public Use
  Company Number: US-BAYER-2012-058869

PATIENT
  Age: 71 Year
  Sex: Male

DRUGS (2)
  1. ANTINEOPLASTIC AGENTS [Concomitant]
  2. LEUKINE [Suspect]
     Indication: ADVERSE DRUG REACTION
     Dosage: 250 ?G, TIW

REACTIONS (1)
  - INJECTION SITE PRURITUS [None]
